FAERS Safety Report 13918341 (Version 6)
Quarter: 2021Q3

REPORT INFORMATION
  Report Type: Report from Study
  Country: US (occurrence: US)
  Receive Date: 20170829
  Receipt Date: 20210812
  Transmission Date: 20211014
  Serious: Yes (Hospitalization, Disabling, Other)
  Sender: FDA-Public Use
  Company Number: US-SA-2017SA144082

PATIENT
  Age: 50 Year
  Sex: Male
  Weight: 62.2 kg

DRUGS (25)
  1. METHYLPREDNISOLONE. [Concomitant]
     Active Substance: METHYLPREDNISOLONE
     Dosage: 50 MG
     Route: 048
  2. MIDODRINE [Concomitant]
     Active Substance: MIDODRINE
     Dosage: UNK
  3. PANTOPRAZOLE [Concomitant]
     Active Substance: PANTOPRAZOLE
     Dosage: DELAYED RELEASE TABLET
  4. AGALSIDASE BETA [Suspect]
     Active Substance: AGALSIDASE BETA
     Dosage: 70 MG, QOW
     Route: 042
     Dates: start: 20210422
  5. LEVOTHYROXINE. [Concomitant]
     Active Substance: LEVOTHYROXINE
     Dosage: 1 DF, QD (1 TABLET (25 MCG TOTAL) EVERY MORNING BEFORE BREAKFAST)
     Route: 065
     Dates: start: 20160607
  6. TAMSULOSIN [Concomitant]
     Active Substance: TAMSULOSIN
     Dosage: 0.8 MG
     Route: 048
  7. LISINOPRIL. [Suspect]
     Active Substance: LISINOPRIL
     Indication: PROTEINURIA
     Dosage: 10 MG,QD
     Route: 048
  8. ASA [Concomitant]
     Active Substance: ASPIRIN
     Dosage: 82.5 MG,QD
     Route: 048
     Dates: start: 201609
  9. ASPIRIN (E.C.) [Concomitant]
     Active Substance: ASPIRIN
     Dosage: 81 MG, QD
     Route: 048
  10. CLOPIDOGREL [Concomitant]
     Active Substance: CLOPIDOGREL BISULFATE
  11. SSD [Concomitant]
     Active Substance: SILVER SULFADIAZINE
     Dosage: APPLY 1 APPLICATION TOPICALLY 2 TIMES DAILY, BID
     Route: 061
  12. AGALSIDASE BETA [Suspect]
     Active Substance: AGALSIDASE BETA
     Indication: FABRY^S DISEASE
     Dosage: 1 MG/KG, QOW
     Route: 041
     Dates: start: 20170214, end: 20190516
  13. LISINOPRIL. [Suspect]
     Active Substance: LISINOPRIL
     Indication: HYPERTENSION
     Dosage: 20 MG,QD
     Route: 048
     Dates: start: 201609
  14. PARACETAMOL [Concomitant]
     Active Substance: ACETAMINOPHEN
     Dosage: UNK UNK,UNK
     Route: 065
  15. SERTRALINE [Concomitant]
     Active Substance: SERTRALINE HYDROCHLORIDE
     Dosage: UNK
  16. SEVELAMER CARBONATE. [Concomitant]
     Active Substance: SEVELAMER CARBONATE
     Dosage: UNK
  17. METHYLPREDNISOLONE. [Concomitant]
     Active Substance: METHYLPREDNISOLONE
     Dosage: 125 MG
     Route: 042
  18. METOPROLOL SUCCINATE. [Concomitant]
     Active Substance: METOPROLOL SUCCINATE
     Indication: HYPERTENSION
     Dosage: UNK
     Route: 048
     Dates: start: 20170629
  19. ACETAMINOPHEN. [Concomitant]
     Active Substance: ACETAMINOPHEN
     Indication: PREMEDICATION
     Dosage: 650 MG
     Route: 048
     Dates: start: 20170309, end: 20170822
  20. DEMEROL [Concomitant]
     Active Substance: MEPERIDINE HYDROCHLORIDE
     Indication: PREMEDICATION
     Dosage: UNK UNK,UNK
     Route: 065
  21. PENTOXIFYLLINE. [Concomitant]
     Active Substance: PENTOXIFYLLINE
     Dosage: UNK UNK,UNK
     Route: 065
  22. ATORVASTATIN [Concomitant]
     Active Substance: ATORVASTATIN
     Dosage: 40 MG
     Route: 048
  23. QUETIAPINE. [Concomitant]
     Active Substance: QUETIAPINE
     Dosage: UNK
  24. IBUPROFEN. [Concomitant]
     Active Substance: IBUPROFEN
     Dosage: UNK UNK,UNK
     Route: 065
  25. METOPROLOL SUCCINATE. [Concomitant]
     Active Substance: METOPROLOL SUCCINATE
     Dosage: 1 DF (25 MG TOTAL), QD
     Route: 048

REACTIONS (75)
  - Bacteraemia [Unknown]
  - Cerebrovascular accident [Recovering/Resolving]
  - Hemiparesis [Unknown]
  - Vitamin D deficiency [Unknown]
  - Cerebellar calcification [Unknown]
  - Hypertension [Recovered/Resolved]
  - Chills [Recovered/Resolved]
  - Asthenia [Unknown]
  - Tinnitus [Unknown]
  - Defect conduction intraventricular [Unknown]
  - Vestibular disorder [Unknown]
  - Cerebral disorder [Unknown]
  - Drug specific antibody present [Unknown]
  - Hypothyroidism [Unknown]
  - Atrioventricular block second degree [Unknown]
  - Coronary artery stenosis [Unknown]
  - Normocytic anaemia [Unknown]
  - Nausea [Recovered/Resolved]
  - Dyspnoea [Recovered/Resolved]
  - Peripheral sensory neuropathy [Unknown]
  - White matter lesion [Unknown]
  - Electrocardiogram QT prolonged [Unknown]
  - Lacunar stroke [Unknown]
  - Microalbuminuria [Unknown]
  - Small fibre neuropathy [Unknown]
  - Pneumonia [Unknown]
  - Acute myocardial infarction [Unknown]
  - Endocarditis bacterial [Unknown]
  - End stage renal disease [Unknown]
  - Condition aggravated [Unknown]
  - Feeling cold [Recovered/Resolved]
  - Urticaria [Recovered/Resolved]
  - Ventricular extrasystoles [Unknown]
  - Enterococcal infection [Unknown]
  - Mitral valve incompetence [Unknown]
  - Cardiomyopathy [Unknown]
  - Myocardial infarction [Unknown]
  - Renal failure [Unknown]
  - Gait inability [Unknown]
  - Metabolic encephalopathy [Unknown]
  - Cerebral atrophy [Unknown]
  - Mobility decreased [Unknown]
  - Magnetic resonance imaging head abnormal [Unknown]
  - Fatigue [Unknown]
  - Proteinuria [Unknown]
  - Cardiac disorder [Unknown]
  - Neuralgia [Unknown]
  - Haemorrhage [Unknown]
  - Gait disturbance [Unknown]
  - Amnesia [Unknown]
  - Pulmonary mass [Unknown]
  - Cerebral calcification [Unknown]
  - Pain in extremity [Unknown]
  - Blood creatine increased [Unknown]
  - Nerve injury [Unknown]
  - Enterococcal infection [Unknown]
  - Left ventricular hypertrophy [Unknown]
  - Aortic stenosis [Unknown]
  - Memory impairment [Unknown]
  - Benign prostatic hyperplasia [Unknown]
  - Infusion related reaction [Recovered/Resolved]
  - Chest pain [Recovered/Resolved]
  - Throat tightness [Recovered/Resolved]
  - Rehabilitation therapy [Unknown]
  - Electrocardiogram repolarisation abnormality [Unknown]
  - Hepatitis B [Unknown]
  - Loss of personal independence in daily activities [Unknown]
  - Overdose [Unknown]
  - Drug abuse [Unknown]
  - Cerebral small vessel ischaemic disease [Unknown]
  - Mental disorder [Unknown]
  - Herpes zoster [Unknown]
  - Hypohidrosis [Unknown]
  - Disease progression [Unknown]
  - Cognitive disorder [Unknown]

NARRATIVE: CASE EVENT DATE: 20170601
